FAERS Safety Report 5023446-X (Version None)
Quarter: 2006Q2

REPORT INFORMATION
  Report Type: 
  Country: None (occurrence: None)
  Receive Date: 20060606
  Receipt Date: 20060523
  Transmission Date: 20061013
  Serious: Yes (Life-Threatening, Hospitalization)
  Sender: FDA-Public Use
  Company Number: CIP06001188

PATIENT
  Age: 41 Year
  Sex: Male

DRUGS (1)
  1. ACTONEL [Suspect]
     Indication: OSTEOPOROSIS
     Dosage: 35 MG ONCE WEEKLY, ORAL
     Route: 048
     Dates: start: 20020401, end: 20020401

REACTIONS (5)
  - DEEP VEIN THROMBOSIS [None]
  - PULMONARY THROMBOSIS [None]
  - RENAL DISORDER [None]
  - SPLEEN DISORDER [None]
  - THROMBOSIS [None]
